FAERS Safety Report 16854503 (Version 3)
Quarter: 2019Q4

REPORT INFORMATION
  Report Type: Report from Study
  Country: IT (occurrence: IT)
  Receive Date: 20190926
  Receipt Date: 20191025
  Transmission Date: 20200122
  Serious: Yes (Hospitalization)
  Sender: FDA-Public Use
  Company Number: IT-TEVA-2019-IT-1112540

PATIENT
  Age: 63 Year
  Sex: Male

DRUGS (12)
  1. ATORVASTATIN [Concomitant]
     Active Substance: ATORVASTATIN
  2. CANRENONE [Suspect]
     Active Substance: CANRENONE
     Indication: HYPERTENSION
     Route: 048
  3. CORTONE ACETATO _ 25 MG COMPRESSE 20 COMPRESSE [Concomitant]
  4. MINIRIN/DDAVP 120 MCG COMPRESSE SUBLINGUALI. [Suspect]
     Active Substance: DESMOPRESSIN ACETATE
     Indication: DIABETES MELLITUS
     Dosage: 360 MICROGRAM PER DAY
     Route: 048
  5. EUTIROX 125 MICROGRAMMI COMPRESSE [Concomitant]
  6. TESTOVIRON 250 MG/ML SOLUZIONE INIETTABILE A RILASCIO PROLUNGATO PER U [Concomitant]
  7. BISOPROLOL HEMIFUMARATE [Concomitant]
     Active Substance: BISOPROLOL FUMARATE
  8. ACETYLSALICYLIC ACID [Concomitant]
     Active Substance: ASPIRIN
     Route: 048
  9. OLEVIA 1000 MG CAPSULE MOLLI [Concomitant]
  10. METFORMIN [Concomitant]
     Active Substance: METFORMIN HYDROCHLORIDE
  11. BRILIQUE 60 MG FILM-COATED TABLETS [Concomitant]
  12. RAMIPRIL. [Suspect]
     Active Substance: RAMIPRIL
     Indication: HYPERTENSION
     Dosage: 5 MILLIGRAM PER DAY
     Route: 048

REACTIONS (5)
  - Drug interaction [Recovering/Resolving]
  - Hyponatraemia [Recovering/Resolving]
  - Bradyphrenia [Recovering/Resolving]
  - Hyperkalaemia [Recovering/Resolving]
  - Hypokinesia [Recovering/Resolving]

NARRATIVE: CASE EVENT DATE: 20190801
